FAERS Safety Report 23789509 (Version 1)
Quarter: 2024Q2

REPORT INFORMATION
  Report Type: Spontaneous
  Country: US (occurrence: US)
  Receive Date: 20240426
  Receipt Date: 20240426
  Transmission Date: 20240716
  Serious: Yes (Other)
  Sender: FDA-Public Use
  Company Number: US-EXELA PHARMA SCIENCES, LLC-2024EXL00010

PATIENT
  Age: 80 Year
  Sex: Female

DRUGS (1)
  1. TRANEXAMIC ACID [Suspect]
     Active Substance: TRANEXAMIC ACID
     Indication: Gastrointestinal haemorrhage

REACTIONS (3)
  - Chest pain [Unknown]
  - Electrocardiogram ST segment elevation [Unknown]
  - Coronary artery thrombosis [Unknown]
